FAERS Safety Report 16476666 (Version 1)
Quarter: 2019Q2

REPORT INFORMATION
  Report Type: Spontaneous
  Country: US (occurrence: US)
  Receive Date: 20190626
  Receipt Date: 20190626
  Transmission Date: 20190711
  Serious: No
  Sender: FDA-Public Use
  Company Number: US-TEVA-2019-US-1059707

PATIENT
  Sex: Male
  Weight: 181.41 kg

DRUGS (1)
  1. FEXOFENADINE [Suspect]
     Active Substance: FEXOFENADINE\FEXOFENADINE HYDROCHLORIDE
     Indication: HYPERSENSITIVITY
     Dosage: 180 MILLIGRAM DAILY; 2 WEEKS
     Route: 048
     Dates: start: 201905, end: 201905

REACTIONS (1)
  - Therapeutic product effect incomplete [Unknown]
